FAERS Safety Report 9149591 (Version 1)
Quarter: 2013Q1

REPORT INFORMATION
  Report Type: Spontaneous
  Country: US (occurrence: None)
  Receive Date: 20130228
  Receipt Date: 20130228
  Transmission Date: 20140127
  Serious: Yes (Hospitalization)
  Sender: FDA-Public Use
  Company Number: None

PATIENT
  Sex: Female
  Weight: 62.6 kg

DRUGS (2)
  1. PRADAXA [Suspect]
     Indication: ATRIAL FIBRILLATION
     Dosage: 150 MG TWICE DAILY
     Dates: end: 20121030
  2. PRADAXA [Suspect]
     Indication: ANTICOAGULANT THERAPY
     Dosage: 150 MG TWICE DAILY
     Dates: end: 20121030

REACTIONS (10)
  - Fatigue [None]
  - Anaemia [None]
  - Gastric haemorrhage [None]
  - Loss of consciousness [None]
  - Fall [None]
  - Haemorrhage [None]
  - Concussion [None]
  - Vertigo [None]
  - Lung disorder [None]
  - Discomfort [None]
